FAERS Safety Report 17357412 (Version 1)
Quarter: 2020Q1

REPORT INFORMATION
  Report Type: Spontaneous
  Country: FR (occurrence: FR)
  Receive Date: 20200131
  Receipt Date: 20200131
  Transmission Date: 20200409
  Serious: Yes (Other)
  Sender: FDA-Public Use
  Company Number: FR-SA-2020SA022982

PATIENT
  Age: 70 Year
  Sex: Male
  Weight: 93 kg

DRUGS (9)
  1. OXYCODONE [Suspect]
     Active Substance: OXYCODONE
     Indication: PAIN
     Dosage: 10 MG, QD
     Route: 048
  2. MOVICOL [Concomitant]
     Active Substance: POLYETHYLENE GLYCOL 3350\POTASSIUM CHLORIDE\SODIUM BICARBONATE\SODIUM CHLORIDE
  3. DIFFU K [Concomitant]
     Active Substance: POTASSIUM CHLORIDE
  4. DALACINE [CLINDAMYCIN PALMITATE HYDROCHLORIDE] [Concomitant]
     Active Substance: CLINDAMYCIN PALMITATE HYDROCHLORIDE
  5. BISOPROLOL HEMIFUMARATE [Concomitant]
     Active Substance: BISOPROLOL FUMARATE
  6. RIFADINE [Suspect]
     Active Substance: RIFAMPIN
     Indication: INTERVERTEBRAL DISCITIS
     Dosage: 3 DF, QD
     Route: 048
     Dates: start: 20190518, end: 20190610
  7. XATRAL LP [Suspect]
     Active Substance: ALFUZOSIN
     Indication: URINARY RETENTION
     Dosage: 1 DF, QD
     Route: 048
     Dates: start: 20190514, end: 20190604
  8. INNOHEP [Concomitant]
     Active Substance: TINZAPARIN SODIUM
  9. FUROSEMIDE. [Concomitant]
     Active Substance: FUROSEMIDE

REACTIONS (1)
  - Hepatocellular injury [Recovered/Resolved]

NARRATIVE: CASE EVENT DATE: 20190603
